FAERS Safety Report 8924445 (Version 4)
Quarter: 2013Q4

REPORT INFORMATION
  Report Type: Spontaneous
  Country: AR (occurrence: AR)
  Receive Date: 20121126
  Receipt Date: 20131211
  Transmission Date: 20140711
  Serious: Yes (Other)
  Sender: FDA-Public Use
  Company Number: AR-PFIZER INC-2012289778

PATIENT
  Age: 56 Year
  Sex: Male

DRUGS (5)
  1. SOMAVERT [Suspect]
     Indication: ACROMEGALY
     Dosage: 10 MG, 1X/DAY
     Dates: start: 201211
  2. SOMAVERT [Suspect]
     Dosage: 15 MG, 1X/DAY
  3. SOMAVERT [Suspect]
     Dosage: 20 MG, 1X/DAY
  4. SOMAVERT [Suspect]
     Dosage: 30 MG, 1X/DAY
     Dates: start: 201308
  5. LEVOTHYROXINE [Concomitant]

REACTIONS (2)
  - Thyroid disorder [Unknown]
  - Drug ineffective [Not Recovered/Not Resolved]
